FAERS Safety Report 5084207-9 (Version None)
Quarter: 2006Q3

REPORT INFORMATION
  Report Type: 
  Country: None (occurrence: None)
  Receive Date: 20060821
  Receipt Date: 20051107
  Transmission Date: 20061208
  Serious: No
  Sender: FDA-Public Use
  Company Number: US-BRISTOL-MYERS SQUIBB COMPANY-13170386

PATIENT
  Age: 72 Year
  Sex: Male
  Weight: 77 kg

DRUGS (7)
  1. TEQUIN [Suspect]
     Route: 048
     Dates: start: 20051105
  2. COUMADIN [Concomitant]
     Indication: AORTIC VALVE REPLACEMENT
     Dates: start: 19880101
  3. CLINDAMYCIN [Concomitant]
     Indication: PROPHYLAXIS
     Dates: start: 20051103
  4. LASIX [Concomitant]
  5. POTASSIUM [Concomitant]
  6. GLUCOPHAGE [Concomitant]
  7. COREG [Concomitant]

REACTIONS (1)
  - INTERNATIONAL NORMALISED RATIO ABNORMAL [None]
